FAERS Safety Report 10463459 (Version 1)
Quarter: 2014Q3

REPORT INFORMATION
  Report Type: Spontaneous
  Country: US (occurrence: None)
  Receive Date: 20140917
  Receipt Date: 20140917
  Transmission Date: 20150326
  Serious: Yes (Other)
  Sender: FDA-Public Use
  Company Number: CI014061920

PATIENT
  Age: 55 Year
  Sex: Female

DRUGS (1)
  1. CREST PRO-HEALTH TOOTHPASTE (SODIUM POLYPHOSPHATE 13% STANNOUS FLUORIDE 0.454%, ZINC LACTATE DIHYDRATE 2.5%) [Suspect]
     Active Substance: SODIUM POLYPHOSPHATE\STANNOUS FLUORIDE\ZINC LACTATE
     Dosage: INTRAORAL

REACTIONS (8)
  - Accidental exposure to product [None]
  - Idiopathic urticaria [None]
  - Oedema mouth [None]
  - Allergy to metals [None]
  - Lip swelling [None]
  - Skin test positive [None]
  - Cheilitis [None]
  - Dermatitis [None]
